FAERS Safety Report 12241775 (Version 1)
Quarter: 2016Q2

REPORT INFORMATION
  Report Type: Spontaneous
  Country: None (occurrence: None)
  Receive Date: 20160405
  Receipt Date: 20160405
  Transmission Date: 20160815
  Serious: No
  Sender: FDA-Public Use
  Company Number: None

PATIENT
  Sex: Female

DRUGS (1)
  1. NATEGLINIDE. [Suspect]
     Active Substance: NATEGLINIDE

REACTIONS (2)
  - Diabetes mellitus inadequate control [None]
  - Blood glucose increased [None]
